FAERS Safety Report 4556888-7 (Version None)
Quarter: 2005Q1

REPORT INFORMATION
  Report Type: 
  Country: None (occurrence: None)
  Receive Date: 20050103
  Receipt Date: 20041008
  Transmission Date: 20050727
  Serious: Yes (Other)
  Sender: FDA-Public Use
  Company Number: 2004UW10924

PATIENT
  Age: 74 Year
  Sex: Female
  Weight: 69.8539 kg

DRUGS (4)
  1. CRESTOR [Suspect]
     Indication: HYPERCHOLESTEROLAEMIA
     Dates: start: 20040201
  2. ASPIRIN [Concomitant]
  3. SYNTHROID [Concomitant]
  4. B-12 VITAMIN [Concomitant]

REACTIONS (4)
  - GINGIVITIS [None]
  - INFLUENZA LIKE ILLNESS [None]
  - NECK PAIN [None]
  - PHARYNGOLARYNGEAL PAIN [None]
